FAERS Safety Report 5470945-2 (Version None)
Quarter: 2007Q3

REPORT INFORMATION
  Report Type: 
  Country: None (occurrence: None)
  Receive Date: 20070928
  Receipt Date: 20070920
  Transmission Date: 20080115
  Serious: Yes (Hospitalization)
  Sender: FDA-Public Use
  Company Number: JP-AMGEN-US232753

PATIENT
  Sex: Male
  Weight: 46 kg

DRUGS (23)
  1. ENBREL [Suspect]
     Indication: RHEUMATOID ARTHRITIS
     Route: 058
     Dates: start: 20070316, end: 20070605
  2. PREDNISOLONE [Suspect]
     Indication: RHEUMATOID ARTHRITIS
     Route: 048
     Dates: start: 20061003, end: 20061003
  3. PREDNISOLONE [Suspect]
     Route: 048
     Dates: start: 20061017, end: 20061017
  4. PREDNISOLONE [Suspect]
     Route: 048
     Dates: start: 20061031, end: 20061031
  5. PREDNISOLONE [Suspect]
     Route: 048
     Dates: start: 20061201, end: 20061201
  6. PREDNISOLONE [Suspect]
     Route: 048
     Dates: start: 20070209, end: 20070209
  7. PREDNISOLONE [Suspect]
     Route: 048
     Dates: start: 20070316, end: 20070316
  8. PREDNISOLONE [Suspect]
     Dosage: 5 MG
     Dates: start: 20060901
  9. PROGRAF [Suspect]
     Indication: RHEUMATOID ARTHRITIS
     Route: 048
     Dates: start: 20061003, end: 20061003
  10. PROGRAF [Suspect]
     Route: 048
     Dates: start: 20061017, end: 20061017
  11. PROGRAF [Suspect]
     Route: 048
     Dates: start: 20061031, end: 20061031
  12. PROGRAF [Suspect]
     Route: 048
     Dates: start: 20061201, end: 20061201
  13. PROGRAF [Suspect]
     Route: 048
     Dates: start: 20070209, end: 20070209
  14. PROGRAF [Suspect]
     Route: 048
     Dates: start: 20070316, end: 20070316
  15. HYPEN [Concomitant]
     Indication: RHEUMATOID ARTHRITIS
     Route: 048
     Dates: start: 20061201
  16. SELBEX [Concomitant]
     Indication: GASTRIC ULCER
     Route: 048
     Dates: start: 20061201
  17. RISEDRONATE SODIUM [Concomitant]
     Dosage: NOT SPECIFIED
     Route: 048
  18. NITRODERM [Concomitant]
     Indication: ANGINA PECTORIS
     Dates: start: 20061003
  19. MICARDIS [Concomitant]
     Indication: HYPERTENSION
     Route: 048
     Dates: start: 20061003
  20. ALFAROL [Concomitant]
     Indication: OSTEOPOROSIS
     Route: 048
     Dates: start: 20061201
  21. KALIMATE [Concomitant]
     Dosage: NOT SPECIFIED
     Route: 048
  22. FRANDOL [Concomitant]
     Dosage: NOT SPECIFIED
  23. LANSOPRAZOLE [Concomitant]
     Indication: GASTRIC ULCER
     Route: 048
     Dates: start: 20061003

REACTIONS (1)
  - PULMONARY TUBERCULOSIS [None]
